FAERS Safety Report 13375815 (Version 5)
Quarter: 2018Q1

REPORT INFORMATION
  Report Type: Spontaneous
  Country: US (occurrence: US)
  Receive Date: 20170328
  Receipt Date: 20180228
  Transmission Date: 20180508
  Serious: No
  Sender: FDA-Public Use
  Company Number: US-TEVA-749530ACC

PATIENT
  Sex: Female

DRUGS (80)
  1. IBUPROFEN. [Concomitant]
     Active Substance: IBUPROFEN
     Dates: start: 20171108, end: 20180127
  2. NEXIUM [Concomitant]
     Active Substance: ESOMEPRAZOLE MAGNESIUM
     Dosage: END DATE : 16-MAR-2018
     Dates: start: 20170917
  3. NEXIUM [Concomitant]
     Active Substance: ESOMEPRAZOLE MAGNESIUM
     Dates: start: 20170227
  4. RANITIDINE. [Concomitant]
     Active Substance: RANITIDINE
  5. LISINOPRIL. [Concomitant]
     Active Substance: LISINOPRIL
     Dates: start: 20161207, end: 20170901
  6. LISINOPRIL. [Concomitant]
     Active Substance: LISINOPRIL
  7. PRAVASTATIN. [Concomitant]
     Active Substance: PRAVASTATIN
  8. CARBAMAZEPIN [Concomitant]
     Active Substance: CARBAMAZEPINE
     Dates: start: 20171128
  9. VITAMIN D [Concomitant]
     Active Substance: CHOLECALCIFEROL
     Dates: start: 20170227
  10. AMITRIPTYLINE [Concomitant]
     Active Substance: AMITRIPTYLINE
  11. HYDROCODONE BITARTRATE AND ACETAMINOPHEN [Concomitant]
     Active Substance: ACETAMINOPHEN\HYDROCODONE BITARTRATE
     Dosage: 5/325MG
  12. LISINOPRIL/HCTZ [Concomitant]
     Active Substance: HYDROCHLOROTHIAZIDE\LISINOPRIL
     Dosage: 10-12.5 (UNITS UNSPECIFIED)
  13. PEG-3350KCL SOL/SODIUM [Concomitant]
  14. VITAMIN B12 [Concomitant]
     Active Substance: CYANOCOBALAMIN
     Dosage: ACTIVE CHW
     Dates: start: 20171128
  15. PANTOPRAZOLE [Concomitant]
     Active Substance: PANTOPRAZOLE
  16. NEXIUM [Concomitant]
     Active Substance: ESOMEPRAZOLE MAGNESIUM
  17. NEXIUM [Concomitant]
     Active Substance: ESOMEPRAZOLE MAGNESIUM
  18. LISINOPRIL. [Concomitant]
     Active Substance: LISINOPRIL
  19. CARBAMAZEPIN [Concomitant]
     Active Substance: CARBAMAZEPINE
     Dosage: EXTENDED RELEASE, END DATE : 09-MAR-2018
     Dates: start: 20171111
  20. ALBUTEROL. [Concomitant]
     Active Substance: ALBUTEROL
  21. BACLOFEN. [Concomitant]
     Active Substance: BACLOFEN
  22. FLUTICASONE SPR [Concomitant]
  23. JANUVIA [Concomitant]
     Active Substance: SITAGLIPTIN PHOSPHATE
     Dosage: END DATE : 20-MAR-2018
     Dates: start: 20170626
  24. ATORVASTATIN [Concomitant]
     Active Substance: ATORVASTATIN
     Dosage: END DATE : 04-MAR-2018
     Dates: start: 20171106
  25. COPAXONE [Suspect]
     Active Substance: GLATIRAMER ACETATE
     Indication: MULTIPLE SCLEROSIS
     Route: 058
     Dates: start: 20150528
  26. METFORMIN [Concomitant]
     Active Substance: METFORMIN HYDROCHLORIDE
     Dates: start: 20170803, end: 20180130
  27. METFORMIN [Concomitant]
     Active Substance: METFORMIN HYDROCHLORIDE
     Dosage: END DATE : 01-MAR-2018
     Dates: start: 20171203
  28. METFORMIN [Concomitant]
     Active Substance: METFORMIN HYDROCHLORIDE
  29. METFORMIN [Concomitant]
     Active Substance: METFORMIN HYDROCHLORIDE
  30. PRAVASTATIN. [Concomitant]
     Active Substance: PRAVASTATIN
  31. PRAVASTATIN. [Concomitant]
     Active Substance: PRAVASTATIN
  32. TIZANIDINE. [Concomitant]
     Active Substance: TIZANIDINE
  33. VITAMIN C [Concomitant]
     Active Substance: ASCORBIC ACID
  34. BACLOFEN. [Concomitant]
     Active Substance: BACLOFEN
     Dosage: END DATE : 07-FEB-2018
     Dates: start: 20170811
  35. IBUPROFEN. [Concomitant]
     Active Substance: IBUPROFEN
  36. SYMBICORT AER [Concomitant]
     Dosage: 160-4.5, END DATE : 09-MAR-2018
     Route: 065
     Dates: start: 20171109
  37. MOBIC [Concomitant]
     Active Substance: MELOXICAM
  38. PRAVASTATIN. [Concomitant]
     Active Substance: PRAVASTATIN
  39. ZOFRAN [Concomitant]
     Active Substance: ONDANSETRON HYDROCHLORIDE
     Dates: start: 20161123
  40. ZOFRAN [Concomitant]
     Active Substance: ONDANSETRON HYDROCHLORIDE
     Dates: start: 20170227
  41. CLINDAMYCIN. [Concomitant]
     Active Substance: CLINDAMYCIN
     Dates: start: 20180113, end: 20180127
  42. ONGLYZA [Concomitant]
     Active Substance: SAXAGLIPTIN HYDROCHLORIDE
  43. PROAIR HFA AER [Concomitant]
     Dosage: END DATE : 14-FEB-2018
     Dates: start: 20171225
  44. PANTOPRAZOLE [Concomitant]
     Active Substance: PANTOPRAZOLE
  45. IBUPROFEN. [Concomitant]
     Active Substance: IBUPROFEN
     Dosage: END DATE : 08-MAR-2018
     Dates: start: 20171218
  46. NEXIUM [Concomitant]
     Active Substance: ESOMEPRAZOLE MAGNESIUM
  47. RANITIDINE. [Concomitant]
     Active Substance: RANITIDINE
  48. RANITIDINE. [Concomitant]
     Active Substance: RANITIDINE
  49. LISINOPRIL. [Concomitant]
     Active Substance: LISINOPRIL
  50. LISINOPRIL. [Concomitant]
     Active Substance: LISINOPRIL
  51. FLUTICASONE SPR [Concomitant]
     Dates: start: 20161226, end: 20170224
  52. GABAPENTIN. [Concomitant]
     Active Substance: GABAPENTIN
     Dosage: END DATE: 05-FEB-2018
     Dates: start: 20170825
  53. HYDROCODONE BITARTRATE AND ACETAMINOPHEN [Concomitant]
     Active Substance: ACETAMINOPHEN\HYDROCODONE BITARTRATE
     Dosage: 5/325MG
  54. HYOSCYAMINE. [Concomitant]
     Active Substance: HYOSCYAMINE
  55. JANUVIA [Concomitant]
     Active Substance: SITAGLIPTIN PHOSPHATE
  56. LISINOPRIL/HCTZ [Concomitant]
     Active Substance: HYDROCHLOROTHIAZIDE\LISINOPRIL
     Dosage: 10-12.5 (UNITS UNSPECIFIED)
  57. OCCLUVAN [Concomitant]
     Route: 065
     Dates: start: 20161123
  58. RANITIDINE. [Concomitant]
     Active Substance: RANITIDINE
     Dates: start: 20170810
  59. LISINOPRIL. [Concomitant]
     Active Substance: LISINOPRIL
     Dates: start: 20160818, end: 20170214
  60. PRAVASTATIN. [Concomitant]
     Active Substance: PRAVASTATIN
     Dates: start: 20170227
  61. VICODIN [Concomitant]
     Active Substance: ACETAMINOPHEN\HYDROCODONE BITARTRATE
     Dosage: 5-300MG
     Dates: start: 20161123
  62. ASPIRIN. [Concomitant]
     Active Substance: ASPIRIN
     Dates: start: 20170227
  63. VITAMIN B12 [Concomitant]
     Active Substance: CYANOCOBALAMIN
     Dates: start: 20171128
  64. IBUPROFEN. [Concomitant]
     Active Substance: IBUPROFEN
  65. NEXIUM [Concomitant]
     Active Substance: ESOMEPRAZOLE MAGNESIUM
  66. LISINOPRIL. [Concomitant]
     Active Substance: LISINOPRIL
     Dosage: 10 TO 12.5 MG
     Dates: start: 20170227
  67. MELOXICAM. [Concomitant]
     Active Substance: MELOXICAM
  68. MELOXICAM. [Concomitant]
     Active Substance: MELOXICAM
  69. GABAPENTIN. [Concomitant]
     Active Substance: GABAPENTIN
     Dosage: END DATE : 25-APR-2018
     Dates: start: 20171112
  70. ONDANSETRON [Concomitant]
     Active Substance: ONDANSETRON
     Dosage: ODT
  71. ACIDOPHILUS [Concomitant]
     Active Substance: LACTOBACILLUS ACIDOPHILUS
     Dosage: END DATE : 22-FEB-2018
     Dates: start: 20180113
  72. PANTOPRAZOLE [Concomitant]
     Active Substance: PANTOPRAZOLE
  73. NEXIUM [Concomitant]
     Active Substance: ESOMEPRAZOLE MAGNESIUM
     Dosage: END DATE : 17-MAR-2018
     Dates: start: 20170918
  74. LISINOPRIL. [Concomitant]
     Active Substance: LISINOPRIL
  75. CARBAMAZEPIN [Concomitant]
     Active Substance: CARBAMAZEPINE
     Dates: start: 20170227
  76. BACLOFEN. [Concomitant]
     Active Substance: BACLOFEN
     Dosage: END DATE : 05-MAY-2018
     Dates: start: 20171106
  77. FLUTICASONE SPR [Concomitant]
     Dates: start: 20160905, end: 20170126
  78. JANUVIA [Concomitant]
     Active Substance: SITAGLIPTIN PHOSPHATE
     Dates: start: 20170227
  79. METHYLPRED [Concomitant]
     Active Substance: METHYLPREDNISOLONE
  80. ONDANSETRON [Concomitant]
     Active Substance: ONDANSETRON

REACTIONS (9)
  - Nausea [Not Recovered/Not Resolved]
  - Injection site reaction [Not Recovered/Not Resolved]
  - Contusion [Unknown]
  - Motor dysfunction [Not Recovered/Not Resolved]
  - Fatigue [Not Recovered/Not Resolved]
  - Memory impairment [Not Recovered/Not Resolved]
  - Influenza like illness [Not Recovered/Not Resolved]
  - Headache [Not Recovered/Not Resolved]
  - Pruritus [Unknown]
